FAERS Safety Report 9473156 (Version 2)
Quarter: 2013Q3

REPORT INFORMATION
  Report Type: Spontaneous
  Country: US (occurrence: US)
  Receive Date: 20130823
  Receipt Date: 20130823
  Transmission Date: 20140515
  Serious: No
  Sender: FDA-Public Use
  Company Number: US-BRISTOL-MYERS SQUIBB COMPANY-18704528

PATIENT
  Age: 53 Year
  Sex: Female

DRUGS (4)
  1. SPRYCEL [Suspect]
     Indication: CHRONIC MYELOID LEUKAEMIA
     Dates: start: 20130220
  2. LASIX [Concomitant]
  3. PROVENTIL [Concomitant]
     Dosage: INHALER
     Dates: start: 20100902
  4. MAGNESIUM [Concomitant]
     Dates: start: 20130313

REACTIONS (4)
  - Dyspnoea [Unknown]
  - Chest discomfort [Unknown]
  - Swelling [Unknown]
  - Leukocytosis [Unknown]
